FAERS Safety Report 21234809 (Version 1)
Quarter: 2022Q3

REPORT INFORMATION
  Report Type: Spontaneous
  Country: IT (occurrence: IT)
  Receive Date: 20220820
  Receipt Date: 20220820
  Transmission Date: 20221027
  Serious: Yes (Death, Other)
  Sender: FDA-Public Use
  Company Number: IT-JNJFOC-20220820980

PATIENT

DRUGS (1)
  1. IMBRUVICA [Suspect]
     Active Substance: IBRUTINIB
     Indication: Chronic lymphocytic leukaemia
     Route: 048
     Dates: start: 201401, end: 202103

REACTIONS (13)
  - Sudden cardiac death [Fatal]
  - Neutropenia [Unknown]
  - Atrial fibrillation [Unknown]
  - Cardiac failure [Unknown]
  - Haemorrhagic diathesis [Unknown]
  - Pneumonia [Unknown]
  - Anaemia [Unknown]
  - Infection [Unknown]
  - Haemorrhage [Unknown]
  - Respiratory tract infection [Unknown]
  - Second primary malignancy [Unknown]
  - Acute coronary syndrome [Unknown]
  - Hypertension [Unknown]
